FAERS Safety Report 16289647 (Version 1)
Quarter: 2019Q2

REPORT INFORMATION
  Report Type: Spontaneous
  Country: US (occurrence: US)
  Receive Date: 20190509
  Receipt Date: 20190509
  Transmission Date: 20190711
  Serious: Yes (Other)
  Sender: FDA-Public Use
  Company Number: US-BAYER-2019-089745

PATIENT

DRUGS (1)
  1. ALEVE PM [Suspect]
     Active Substance: DIPHENHYDRAMINE HYDROCHLORIDE\NAPROXEN SODIUM
     Dosage: 1 DF, HS

REACTIONS (4)
  - Incorrect dose administered [Unknown]
  - Oesophageal ulcer [Recovered/Resolved]
  - Incorrect product administration duration [None]
  - Haemoptysis [Recovered/Resolved]
